FAERS Safety Report 5336467-4 (Version None)
Quarter: 2007Q2

REPORT INFORMATION
  Report Type: 
  Country: None (occurrence: None)
  Receive Date: 20070524
  Receipt Date: 20070509
  Transmission Date: 20071010
  Serious: Yes (Death, Other)
  Sender: FDA-Public Use
  Company Number: 2007JP001564

PATIENT
  Age: 48 Year
  Sex: Female

DRUGS (14)
  1. PROGRAF [Suspect]
     Indication: RHEUMATOID ARTHRITIS
     Dosage: SEE IMAGE
     Route: 048
     Dates: start: 20070305, end: 20070315
  2. PROGRAF [Suspect]
     Indication: RHEUMATOID ARTHRITIS
     Dosage: SEE IMAGE
     Route: 048
     Dates: start: 20070316, end: 20070318
  3. BETAMETHASONE [Concomitant]
  4. LANSOPRAZOLE [Concomitant]
  5. MAGMITT (MAGNESIUM OXIDE) [Concomitant]
  6. SUCRALFATE [Concomitant]
  7. ISONIAZID [Concomitant]
  8. PYRIDOXAL PHOSPHATE (PYRIDOXAL PHOSPHATE) [Concomitant]
  9. ALFAROL (ALFACALCIDOL) [Concomitant]
  10. ACTONEL [Concomitant]
  11. FERROMIA (FERROUS CITRATE) [Concomitant]
  12. DAI-BOFU-TO (HERBAL EXTRACT NOS) [Concomitant]
  13. ZOLPIDEM TARTRATE [Concomitant]
  14. DICLOFENAC SODIUM [Concomitant]

REACTIONS (18)
  - ACIDOSIS [None]
  - C-REACTIVE PROTEIN INCREASED [None]
  - CARDIAC ARREST [None]
  - CONDITION AGGRAVATED [None]
  - DISSEMINATED INTRAVASCULAR COAGULATION [None]
  - DRUG INEFFECTIVE [None]
  - GASTROINTESTINAL NECROSIS [None]
  - HAEMODIALYSIS [None]
  - HYPERKALAEMIA [None]
  - ILEUS [None]
  - INTESTINAL OBSTRUCTION [None]
  - LABORATORY TEST ABNORMAL [None]
  - LIVER DISORDER [None]
  - MOVEMENT DISORDER [None]
  - MULTI-ORGAN FAILURE [None]
  - PAIN [None]
  - PANCYTOPENIA [None]
  - VASCULITIS [None]
